FAERS Safety Report 23279680 (Version 2)
Quarter: 2024Q4

REPORT INFORMATION
  Report Type: Spontaneous
  Country: FR (occurrence: FR)
  Receive Date: 20231210
  Receipt Date: 20241130
  Transmission Date: 20250114
  Serious: Yes (Hospitalization, Other)
  Sender: AUROBINDO
  Company Number: FR-MLMSERVICE-20231122-4680579-1

PATIENT
  Age: 55 Year
  Sex: Female

DRUGS (3)
  1. AMOXICILLIN [Suspect]
     Active Substance: AMOXICILLIN
     Indication: Endocarditis
     Dosage: UNK, EVERY WEEK
     Route: 065
  2. AMOXICILLIN [Suspect]
     Active Substance: AMOXICILLIN
     Indication: Endocarditis enterococcal
     Dosage: 12 GRAM, ONCE A DAY
     Route: 042
  3. CEFTRIAXONE [Concomitant]
     Active Substance: CEFTRIAXONE
     Indication: Endocarditis enterococcal
     Dosage: 4 GRAM, ONCE A DAY
     Route: 042

REACTIONS (2)
  - Acute kidney injury [Recovered/Resolved]
  - Crystal nephropathy [Recovered/Resolved]
